FAERS Safety Report 25652268 (Version 2)
Quarter: 2025Q3

REPORT INFORMATION
  Report Type: Spontaneous
  Country: GB (occurrence: GB)
  Receive Date: 20250807
  Receipt Date: 20250820
  Transmission Date: 20251021
  Serious: Yes (Hospitalization, Other)
  Sender: ROCHE
  Company Number: GB-ROCHE-10000353185

PATIENT
  Sex: Female
  Weight: 61.4 kg

DRUGS (3)
  1. RITUXIMAB [Suspect]
     Active Substance: RITUXIMAB
     Indication: Immune thrombocytopenia
     Route: 065
     Dates: start: 20240710
  2. RITUXIMAB [Suspect]
     Active Substance: RITUXIMAB
     Dosage: 375 MG/M2 (OF 4 X WEEKLY INFUSIONS)
     Route: 065
     Dates: start: 20241211
  3. HYDROXYCHLOROQUINE SULFATE [Concomitant]
     Active Substance: HYDROXYCHLOROQUINE SULFATE

REACTIONS (5)
  - Type IV hypersensitivity reaction [Unknown]
  - Immune thrombocytopenia [Unknown]
  - Pyrexia [Unknown]
  - Hypotension [Unknown]
  - Therapeutic product effect decreased [Unknown]
